FAERS Safety Report 19894489 (Version 1)
Quarter: 2021Q3

REPORT INFORMATION
  Report Type: Spontaneous
  Country: US (occurrence: US)
  Receive Date: 20210929
  Receipt Date: 20210929
  Transmission Date: 20211014
  Serious: No
  Sender: FDA-Public Use
  Company Number: US-APOTEX-2021AP024001

PATIENT

DRUGS (8)
  1. ALLOPURINOL. [Suspect]
     Active Substance: ALLOPURINOL
     Indication: PRODUCT USED FOR UNKNOWN INDICATION
     Dosage: UNK
     Route: 065
  2. CYCLOSPORINE. [Suspect]
     Active Substance: CYCLOSPORINE
     Dosage: 1.73 MILLIGRAM/KILOGRAM, QD
     Route: 065
  3. CYCLOSPORINE. [Suspect]
     Active Substance: CYCLOSPORINE
     Dosage: 0.98 MILLIGRAM/KILOGRAM, QD
     Route: 065
  4. ATORVASTATIN [Suspect]
     Active Substance: ATORVASTATIN
     Indication: PRODUCT USED FOR UNKNOWN INDICATION
     Dosage: UNK
     Route: 065
  5. CYCLOSPORINE. [Suspect]
     Active Substance: CYCLOSPORINE
     Dosage: 1.47 MILLIGRAM/KILOGRAM, QD
     Route: 065
  6. CYCLOSPORINE. [Suspect]
     Active Substance: CYCLOSPORINE
     Dosage: 1.71 MILLIGRAM/KILOGRAM, QD
     Route: 065
  7. CYCLOSPORINE. [Suspect]
     Active Substance: CYCLOSPORINE
     Dosage: 0.98 MILLIGRAM/KILOGRAM, QD
     Route: 065
  8. CYCLOSPORINE. [Suspect]
     Active Substance: CYCLOSPORINE
     Indication: CYSTITIS INTERSTITIAL
     Dosage: TWICE A DAY IN EQUAL DOSES
     Route: 065

REACTIONS (2)
  - Drug level increased [Not Recovered/Not Resolved]
  - Off label use [Unknown]
